FAERS Safety Report 6855798-X (Version None)
Quarter: 2010Q3

REPORT INFORMATION
  Report Type: 
  Country: None (occurrence: None)
  Receive Date: 20100719
  Receipt Date: 20100709
  Transmission Date: 20110219
  Serious: Yes (Hospitalization, Other)
  Sender: FDA-Public Use
  Company Number: US-ABBOTT-10P-163-0650472-00

PATIENT
  Sex: Female
  Weight: 60.382 kg

DRUGS (6)
  1. HUMIRA [Suspect]
     Indication: RHEUMATOID ARTHRITIS
     Route: 058
     Dates: start: 20100301
  2. HUMIRA [Suspect]
     Route: 058
     Dates: start: 20080101, end: 20100201
  3. UNKNOWN MUSCLE RELAXANT [Concomitant]
     Indication: FIBROMYALGIA
     Route: 048
  4. VITAMIN D [Concomitant]
     Indication: MEDICAL DIET
     Route: 048
  5. FOLIC ACID [Concomitant]
     Indication: VITAMIN SUPPLEMENTATION
     Route: 048
  6. METHOTREXATE [Concomitant]
     Indication: RHEUMATOID ARTHRITIS
     Route: 048

REACTIONS (3)
  - ENDOMETRIAL NEOPLASM [None]
  - IMPAIRED HEALING [None]
  - UPPER LIMB FRACTURE [None]
